FAERS Safety Report 6251639-2 (Version None)
Quarter: 2009Q2

REPORT INFORMATION
  Report Type: 
  Country: None (occurrence: None)
  Receive Date: 20090626
  Receipt Date: 20090626
  Transmission Date: 20091009
  Serious: No
  Sender: FDA-Public Use
  Company Number: None

PATIENT
  Sex: Female
  Weight: 56.6996 kg

DRUGS (2)
  1. FENTANYL TRANSDERMAL SYSTEM [Suspect]
     Indication: FATIGUE
     Dosage: 1 PATCH EVERY 3 DAYS TRANSDERMAL; 2 BOXES
     Route: 062
     Dates: start: 20090201, end: 20090331
  2. FENTANYL TRANSDERMAL SYSTEM [Suspect]
     Indication: PAIN
     Dosage: 1 PATCH EVERY 3 DAYS TRANSDERMAL; 2 BOXES
     Route: 062
     Dates: start: 20090201, end: 20090331

REACTIONS (6)
  - DEVICE FAILURE [None]
  - DEVICE LEAKAGE [None]
  - DRUG INEFFECTIVE [None]
  - PAIN [None]
  - PRODUCT QUALITY ISSUE [None]
  - PRODUCT SUBSTITUTION ISSUE [None]
